FAERS Safety Report 9912082 (Version 3)
Quarter: 2014Q2

REPORT INFORMATION
  Report Type: Spontaneous
  Country: DE (occurrence: DE)
  Receive Date: 20140219
  Receipt Date: 20140612
  Transmission Date: 20141212
  Serious: Yes (Death, Life-Threatening, Hospitalization)
  Sender: FDA-Public Use
  Company Number: DE-BRISTOL-MYERS SQUIBB COMPANY-20170791

PATIENT
  Age: 80 Year
  Sex: Female
  Weight: 65 kg

DRUGS (14)
  1. ONGLYZA TABS [Suspect]
     Indication: TYPE 2 DIABETES MELLITUS
     Route: 048
     Dates: start: 201309, end: 201401
  2. METFORMIN HCL [Suspect]
     Indication: TYPE 2 DIABETES MELLITUS
     Route: 048
     Dates: start: 2011, end: 201401
  3. MADOPAR [Concomitant]
     Indication: RESTLESSNESS
     Route: 048
  4. MIRTAZAPINE [Concomitant]
     Indication: DEPRESSION
     Route: 048
  5. ROPINIROLE [Concomitant]
     Route: 048
  6. GABAPENTIN [Concomitant]
     Route: 048
  7. ATORVASTATIN [Concomitant]
     Indication: HYPERLIPIDAEMIA
     Route: 048
  8. PANTOPRAZOLE [Concomitant]
     Route: 048
  9. METAMIZOLE SODIUM [Concomitant]
     Route: 048
  10. TILIDINE HCL + NALOXONE HCL [Concomitant]
     Dosage: TILIDIN 100/8 MG
     Route: 048
  11. FOLIC ACID [Concomitant]
     Route: 048
  12. METOCLOPRAMIDE [Concomitant]
     Route: 048
  13. KALINOR [Concomitant]
     Route: 048
  14. ACTRAPHANE [Concomitant]

REACTIONS (1)
  - Oedematous pancreatitis [Fatal]
